FAERS Safety Report 6237157-6 (Version None)
Quarter: 2009Q2

REPORT INFORMATION
  Report Type: 
  Country: None (occurrence: None)
  Receive Date: 20090619
  Receipt Date: 20090504
  Transmission Date: 20091009
  Serious: Yes (Other)
  Sender: FDA-Public Use
  Company Number: US-ASTRAZENECA-2009UW11357

PATIENT
  Age: 41 Year
  Sex: Male

DRUGS (3)
  1. SYMBICORT [Suspect]
     Dosage: 160/4.5 UP TO 8 INHALATIONS A DAY
     Route: 055
  2. NASAL STEROID SPRAY [Concomitant]
     Route: 045
  3. CLARITIN [Concomitant]

REACTIONS (2)
  - MUSCLE SPASMS [None]
  - OVERDOSE [None]
